FAERS Safety Report 16776661 (Version 2)
Quarter: 2020Q2

REPORT INFORMATION
  Report Type: Report from Study
  Country: MX (occurrence: MX)
  Receive Date: 20190905
  Receipt Date: 20200521
  Transmission Date: 20200713
  Serious: Yes (Hospitalization, Other)
  Sender: FDA-Public Use
  Company Number: MX-SA-2019SA150792

PATIENT
  Sex: Female

DRUGS (1)
  1. ALEMTUZUMAB [Suspect]
     Active Substance: ALEMTUZUMAB
     Indication: MULTIPLE SCLEROSIS
     Dosage: UNK, UNK
     Route: 041
     Dates: start: 20190227, end: 20200303

REACTIONS (17)
  - Vascular injury [Recovering/Resolving]
  - Band neutrophil percentage [Unknown]
  - Eosinophil percentage decreased [Unknown]
  - Lymphocyte percentage decreased [Unknown]
  - Crystal urine present [Unknown]
  - Herpes zoster [Recovered/Resolved]
  - Herpes virus infection [Recovered/Resolved]
  - Blood test abnormal [Unknown]
  - Wrist surgery [Recovered/Resolved]
  - Multiple sclerosis relapse [Not Recovered/Not Resolved]
  - Neutrophil count increased [Unknown]
  - Monocyte percentage decreased [Unknown]
  - Lymphocyte count decreased [Unknown]
  - Red cell distribution width increased [Unknown]
  - Metamyelocyte percentage [Unknown]
  - Elbow operation [Recovered/Resolved]
  - Neutrophil percentage increased [Unknown]

NARRATIVE: CASE EVENT DATE: 2019
